FAERS Safety Report 4738688-8 (Version None)
Quarter: 2005Q3

REPORT INFORMATION
  Report Type: 
  Country: None (occurrence: None)
  Receive Date: 20050803
  Receipt Date: 20050719
  Transmission Date: 20060218
  Serious: Yes (Hospitalization)
  Sender: FDA-Public Use
  Company Number: FR_050706846

PATIENT
  Age: 66 Year
  Sex: Female

DRUGS (5)
  1. PROZAC [Suspect]
     Dosage: 20 MG/ 1 DAY
     Dates: start: 20050501, end: 20050526
  2. LEXOMIL (BROMAZEPAM) [Concomitant]
  3. MODOPAR [Concomitant]
  4. STALEVO 100 [Concomitant]
  5. MODOPAR LP 125 [Concomitant]

REACTIONS (3)
  - DELIRIUM [None]
  - HALLUCINATIONS, MIXED [None]
  - PERSECUTORY DELUSION [None]
